FAERS Safety Report 22537028 (Version 1)
Quarter: 2023Q2

REPORT INFORMATION
  Report Type: Spontaneous
  Country: US (occurrence: US)
  Receive Date: 20230608
  Receipt Date: 20230608
  Transmission Date: 20230721
  Serious: Yes (Hospitalization, Other)
  Sender: FDA-Public Use
  Company Number: US-LUPIN PHARMACEUTICALS INC.-2023-04408

PATIENT
  Age: 39 Year
  Sex: Female

DRUGS (8)
  1. CLONIDINE [Interacting]
     Active Substance: CLONIDINE
     Indication: Product used for unknown indication
     Dosage: 0.1 MG, TID
     Route: 065
  2. BUPROPION HYDROCHLORIDE [Interacting]
     Active Substance: BUPROPION HYDROCHLORIDE
     Indication: Product used for unknown indication
     Dosage: 450 MG, QD
     Route: 065
  3. DESVENLAFAXINE [Interacting]
     Active Substance: DESVENLAFAXINE
     Indication: Product used for unknown indication
     Dosage: 200 MG, QD
     Route: 065
  4. YOHIMBINE [Interacting]
     Active Substance: YOHIMBINE
     Indication: Disturbance in sexual arousal
     Dosage: 1 DOSAGE FORM
     Route: 048
  5. BUPRENORPHINE AND NALOXONE [Concomitant]
     Active Substance: BUPRENORPHINE HYDROCHLORIDE\NALOXONE HYDROCHLORIDE
     Indication: Product used for unknown indication
     Dosage: UNK, QD, 1.5 FILMS
     Route: 065
  6. LISDEXAMFETAMINE [Concomitant]
     Active Substance: LISDEXAMFETAMINE
     Indication: Product used for unknown indication
     Dosage: 60 MG EVERY MORNING AND 40 MG AT NOON
     Route: 065
  7. TRAZODONE [Concomitant]
     Active Substance: TRAZODONE HYDROCHLORIDE
     Indication: Product used for unknown indication
     Dosage: 100 MG, QD (NIGHTLY)
     Route: 065
  8. LEVONORGESTREL [Concomitant]
     Active Substance: LEVONORGESTREL
     Indication: Product used for unknown indication
     Dosage: IUD
     Route: 065

REACTIONS (10)
  - Drug withdrawal syndrome [Unknown]
  - Sympathomimetic effect [Unknown]
  - Basal ganglia haemorrhage [Unknown]
  - Subarachnoid haemorrhage [Unknown]
  - Facial paralysis [Unknown]
  - Hemiparesis [Unknown]
  - Aphasia [Unknown]
  - Hypertensive emergency [Unknown]
  - Toxicity to various agents [Unknown]
  - Drug interaction [Unknown]
